FAERS Safety Report 9476802 (Version 4)
Quarter: 2014Q2

REPORT INFORMATION
  Report Type: Spontaneous
  Country: FR (occurrence: FR)
  Receive Date: 20130826
  Receipt Date: 20140403
  Transmission Date: 20141212
  Serious: Yes (Death, Hospitalization)
  Sender: FDA-Public Use
  Company Number: FR-UCBSA-095842

PATIENT
  Age: 60 Year
  Sex: Female

DRUGS (17)
  1. CIMZIA [Suspect]
     Dates: start: 20130528, end: 20130816
  2. CELECOXIB [Suspect]
     Dosage: DOSE: UNKNOWN
     Dates: end: 201308
  3. INEXIUM [Concomitant]
  4. LEVOTHYROX [Concomitant]
  5. LASILIX [Concomitant]
  6. APROVEL [Concomitant]
  7. PROCORALAN [Concomitant]
  8. ISOPTINE [Concomitant]
  9. VOLTARENE EMULGEL [Concomitant]
  10. SPIRIVA [Concomitant]
  11. BRICANYL [Concomitant]
  12. PULMICORT [Concomitant]
  13. INEGY [Concomitant]
  14. PLAVIX [Concomitant]
  15. SYSTANE [Concomitant]
  16. DOMPERIDONE [Concomitant]
  17. HYDROCORTISONE [Concomitant]

REACTIONS (3)
  - Quadriparesis [Fatal]
  - Dysphagia [Unknown]
  - Diplopia [Recovered/Resolved]
